FAERS Safety Report 21176461 (Version 1)
Quarter: 2022Q3

REPORT INFORMATION
  Report Type: Spontaneous
  Country: US (occurrence: None)
  Receive Date: 20220804
  Receipt Date: 20220804
  Transmission Date: 20221027
  Serious: Yes (Other)
  Sender: FDA-Public Use
  Company Number: None

PATIENT
  Age: 65 Year
  Sex: Female
  Weight: 64.4 kg

DRUGS (1)
  1. PAXLOVID [Suspect]
     Active Substance: NIRMATRELVIR\RITONAVIR
     Indication: COVID-19
     Dates: start: 20220721, end: 20220725

REACTIONS (4)
  - COVID-19 [None]
  - Rhinorrhoea [None]
  - Head discomfort [None]
  - Sneezing [None]

NARRATIVE: CASE EVENT DATE: 20220802
